FAERS Safety Report 15985303 (Version 2)
Quarter: 2020Q1

REPORT INFORMATION
  Report Type: Spontaneous
  Country: US (occurrence: US)
  Receive Date: 20190220
  Receipt Date: 20200120
  Transmission Date: 20200409
  Serious: No
  Sender: FDA-Public Use
  Company Number: US-GE HEALTHCARE LIFE SCIENCES-2019CSU000819

PATIENT

DRUGS (5)
  1. MYOVIEW [Suspect]
     Active Substance: TECHNETIUM TC-99M TETROFOSMIN
     Indication: CARDIAC STRESS TEST
     Dosage: 43808 MEQ, SINGLE
     Route: 065
     Dates: start: 20190207, end: 20190207
  2. MYOVIEW [Suspect]
     Active Substance: TECHNETIUM TC-99M TETROFOSMIN
     Indication: PRODUCT USED FOR UNKNOWN INDICATION
  3. SALINE [Concomitant]
     Active Substance: SODIUM CHLORIDE
     Dosage: 27.8 ML, SINGLE
     Dates: start: 20190207, end: 20190207
  4. TECHNETIUM TC 99M [Suspect]
     Active Substance: TECHNETIUM TC-99M
     Indication: CARDIAC STRESS TEST
     Dosage: UNK
     Route: 042
     Dates: start: 20190207, end: 20190207
  5. TECHNETIUM TC 99M [Suspect]
     Active Substance: TECHNETIUM TC-99M
     Indication: PRODUCT USED FOR UNKNOWN INDICATION

REACTIONS (2)
  - No adverse event [Recovered/Resolved]
  - Drug ineffective [Recovered/Resolved]

NARRATIVE: CASE EVENT DATE: 20190207
